FAERS Safety Report 11421078 (Version 1)
Quarter: 2015Q3

REPORT INFORMATION
  Report Type: Spontaneous
  Country: US (occurrence: US)
  Receive Date: 20150826
  Receipt Date: 20150826
  Transmission Date: 20151125
  Serious: Yes (Other)
  Sender: FDA-Public Use
  Company Number: US-ELI_LILLY_AND_COMPANY-US201508006803

PATIENT
  Sex: Female

DRUGS (3)
  1. HUMALOG MIX75/25 [Suspect]
     Active Substance: INSULIN LISPRO
     Indication: PRODUCT USED FOR UNKNOWN INDICATION
     Route: 065
  2. LANTUS [Concomitant]
     Active Substance: INSULIN GLARGINE
  3. HUMALOG [Suspect]
     Active Substance: INSULIN LISPRO
     Indication: PRODUCT USED FOR UNKNOWN INDICATION
     Dosage: UNK
     Route: 065

REACTIONS (16)
  - Blindness [Unknown]
  - Muscular weakness [Unknown]
  - Aneurysm [Unknown]
  - Peripheral vascular disorder [Unknown]
  - Fall [Unknown]
  - Hypertension [Unknown]
  - Vascular occlusion [Unknown]
  - Uterine leiomyoma [Unknown]
  - Sciatica [Unknown]
  - Aphonia [Unknown]
  - Diabetes mellitus [Unknown]
  - Brain midline shift [Unknown]
  - Rheumatoid arthritis [Unknown]
  - Pain in extremity [Unknown]
  - Blood glucose increased [Unknown]
  - Head injury [Unknown]

NARRATIVE: CASE EVENT DATE: 2008
